FAERS Safety Report 5654007-7 (Version None)
Quarter: 2008Q1

REPORT INFORMATION
  Report Type: 
  Country: None (occurrence: None)
  Receive Date: 20080206
  Receipt Date: 20070530
  Transmission Date: 20080703
  Serious: Yes (Hospitalization, Disabling)
  Sender: FDA-Public Use
  Company Number: US200705007476

PATIENT
  Age: 88 Year
  Sex: Female

DRUGS (1)
  1. EVISTA [Suspect]
     Dosage: 60 MG, ORAL
     Route: 048

REACTIONS (1)
  - OEDEMA PERIPHERAL [None]
